FAERS Safety Report 6476475-3 (Version None)
Quarter: 2009Q4

REPORT INFORMATION
  Report Type: 
  Country: None (occurrence: None)
  Receive Date: 20091207
  Receipt Date: 20091125
  Transmission Date: 20100525
  Serious: Yes (Hospitalization)
  Sender: FDA-Public Use
  Company Number: US-JNJFOC-20091200310

PATIENT
  Sex: Female
  Weight: 69.4 kg

DRUGS (9)
  1. TYLENOL COLD HEAD CONGESTION DAYTIME COOL BURST [Suspect]
     Indication: DRUG USE FOR UNKNOWN INDICATION
     Dosage: ^WHOLE BOTTLE^
  2. COCAINE [Suspect]
     Indication: DRUG USE FOR UNKNOWN INDICATION
  3. WARFARIN SODIUM [Concomitant]
  4. WARFARIN SODIUM [Concomitant]
     Indication: PROPHYLAXIS
  5. DILAUDID [Concomitant]
  6. OXYCODONE HCL [Concomitant]
  7. OXYCONTIN [Concomitant]
  8. OMEPRAZOLE [Concomitant]
  9. FOLATE [Concomitant]

REACTIONS (2)
  - ACUTE HEPATIC FAILURE [None]
  - OVERDOSE [None]
